FAERS Safety Report 12698134 (Version 2)
Quarter: 2017Q2

REPORT INFORMATION
  Report Type: Spontaneous
  Country: US (occurrence: US)
  Receive Date: 20160830
  Receipt Date: 20170424
  Transmission Date: 20170830
  Serious: No
  Sender: FDA-Public Use
  Company Number: US-JNJFOC-20160709822

PATIENT
  Sex: Male

DRUGS (15)
  1. RISPERDAL [Suspect]
     Active Substance: RISPERIDONE
     Indication: ANXIETY DISORDER
     Dosage: 1 MG, 1.5 MG, 2 MG, 3 MG AND 4 MG
     Route: 048
     Dates: start: 201309, end: 201403
  2. RISPERDAL [Suspect]
     Active Substance: RISPERIDONE
     Indication: ANXIETY DISORDER
     Dosage: 1 MG, 1.5 MG, 2 MG, 3 MG AND 4 MG
     Route: 048
     Dates: start: 201111, end: 201209
  3. RISPERDAL [Suspect]
     Active Substance: RISPERIDONE
     Indication: MAJOR DEPRESSION
     Dosage: 1 MG, 1.5 MG, 2 MG, 3 MG AND 4 MG
     Route: 048
     Dates: start: 201006
  4. RISPERDAL [Suspect]
     Active Substance: RISPERIDONE
     Indication: PSYCHOTIC DISORDER
     Dosage: 1 MG, 1.5 MG, 2 MG, 3 MG AND 4 MG
     Route: 048
     Dates: start: 201309, end: 201403
  5. RISPERDAL [Suspect]
     Active Substance: RISPERIDONE
     Indication: PSYCHOTIC DISORDER
     Dosage: 1 MG, 1.5 MG, 2 MG, 3 MG AND 4 MG
     Route: 048
     Dates: start: 200907, end: 201001
  6. RISPERDAL [Suspect]
     Active Substance: RISPERIDONE
     Indication: PSYCHOTIC DISORDER
     Dosage: 1 MG, 1.5 MG, 2 MG, 3 MG AND 4 MG
     Route: 048
     Dates: start: 201006
  7. RISPERDAL [Suspect]
     Active Substance: RISPERIDONE
     Indication: MAJOR DEPRESSION
     Dosage: 1 MG, 1.5 MG, 2 MG, 3 MG AND 4 MG
     Route: 048
     Dates: start: 201309, end: 201403
  8. RISPERDAL [Suspect]
     Active Substance: RISPERIDONE
     Indication: PSYCHOTIC DISORDER
     Dosage: 1 MG, 1.5 MG, 2 MG, 3 MG AND 4 MG
     Route: 048
     Dates: start: 201111, end: 201209
  9. RISPERDAL [Suspect]
     Active Substance: RISPERIDONE
     Indication: ANXIETY DISORDER
     Dosage: 1 MG, 1.5 MG, 2 MG, 3 MG AND 4 MG
     Route: 048
     Dates: start: 200907, end: 201001
  10. RISPERDAL CONSTA [Suspect]
     Active Substance: RISPERIDONE
     Indication: PRODUCT USED FOR UNKNOWN INDICATION
     Route: 030
     Dates: start: 201204, end: 201403
  11. RISPERIDONE. [Suspect]
     Active Substance: RISPERIDONE
     Indication: PRODUCT USED FOR UNKNOWN INDICATION
     Route: 048
  12. RISPERDAL [Suspect]
     Active Substance: RISPERIDONE
     Indication: ANXIETY DISORDER
     Dosage: 1 MG, 1.5 MG, 2 MG, 3 MG AND 4 MG
     Route: 048
     Dates: start: 201006
  13. RISPERDAL [Suspect]
     Active Substance: RISPERIDONE
     Indication: MAJOR DEPRESSION
     Dosage: 1 MG, 1.5 MG, 2 MG, 3 MG AND 4 MG
     Route: 048
     Dates: start: 201111, end: 201209
  14. RISPERDAL [Suspect]
     Active Substance: RISPERIDONE
     Indication: MAJOR DEPRESSION
     Dosage: 1 MG, 1.5 MG, 2 MG, 3 MG AND 4 MG
     Route: 048
     Dates: start: 200907, end: 201001
  15. RISPERIDONE. [Suspect]
     Active Substance: RISPERIDONE
     Indication: PRODUCT USED FOR UNKNOWN INDICATION
     Route: 048

REACTIONS (2)
  - Abnormal weight gain [Unknown]
  - Gynaecomastia [Recovered/Resolved]

NARRATIVE: CASE EVENT DATE: 2009
